FAERS Safety Report 6087633-4 (Version None)
Quarter: 2009Q1

REPORT INFORMATION
  Report Type: 
  Country: None (occurrence: None)
  Receive Date: 20090223
  Receipt Date: 20090212
  Transmission Date: 20090719
  Serious: Yes (Other)
  Sender: FDA-Public Use
  Company Number: PHHY2009IT05282

PATIENT
  Age: 16 Year
  Sex: Male

DRUGS (1)
  1. TOLEP [Suspect]

REACTIONS (1)
  - GASTRITIS HAEMORRHAGIC [None]
